FAERS Safety Report 21995577 (Version 1)
Quarter: 2023Q1

REPORT INFORMATION
  Report Type: Spontaneous
  Country: US (occurrence: None)
  Receive Date: 20230214
  Receipt Date: 20230214
  Transmission Date: 20230418
  Serious: Yes (Other)
  Sender: FDA-Public Use
  Company Number: None

PATIENT
  Age: 59 Year
  Sex: Male
  Weight: 71 kg

DRUGS (2)
  1. OCTREOTIDE [Suspect]
     Active Substance: OCTREOTIDE
     Indication: Gastrointestinal disorder
     Dosage: OTHER FREQUENCY : Q6H;?
     Route: 042
     Dates: start: 20230213
  2. SODIUM [Concomitant]
     Active Substance: SODIUM
     Dates: start: 20230213

REACTIONS (1)
  - Seizure [None]

NARRATIVE: CASE EVENT DATE: 20230213
